FAERS Safety Report 5733554-3 (Version None)
Quarter: 2008Q2

REPORT INFORMATION
  Report Type: 
  Country: None (occurrence: None)
  Receive Date: 20080509
  Receipt Date: 20080430
  Transmission Date: 20081010
  Serious: Yes (Life-Threatening)
  Sender: FDA-Public Use
  Company Number: US-WYE-H03900908

PATIENT
  Sex: Female

DRUGS (1)
  1. LYBREL [Suspect]
     Indication: CONTRACEPTION
     Route: 048

REACTIONS (1)
  - SUICIDAL IDEATION [None]
